FAERS Safety Report 18149635 (Version 1)
Quarter: 2020Q3

REPORT INFORMATION
  Report Type: Spontaneous
  Country: CA (occurrence: CA)
  Receive Date: 20200814
  Receipt Date: 20200814
  Transmission Date: 20201103
  Serious: Yes (Life-Threatening)
  Sender: FDA-Public Use
  Company Number: CA-TEVA-2020-CA-1813383

PATIENT
  Age: 29 Year
  Sex: Male

DRUGS (1)
  1. FENTANYL. [Suspect]
     Active Substance: FENTANYL
     Route: 065

REACTIONS (5)
  - Respiratory depression [Recovered/Resolved]
  - Intentional product misuse [Recovered/Resolved]
  - Unresponsive to stimuli [Recovered/Resolved]
  - Depressed level of consciousness [Recovered/Resolved]
  - Loss of consciousness [Recovered/Resolved]
